FAERS Safety Report 20133043 (Version 1)
Quarter: 2021Q4

REPORT INFORMATION
  Report Type: Spontaneous
  Country: US (occurrence: US)
  Receive Date: 20211201
  Receipt Date: 20211201
  Transmission Date: 20220304
  Serious: No
  Sender: FDA-Public Use
  Company Number: US-SA-SAC20211123000549

PATIENT
  Sex: Female

DRUGS (1)
  1. DUPIXENT [Suspect]
     Active Substance: DUPILUMAB
     Indication: Dermatitis atopic
     Dosage: 300MG/1.15 ML, 300 MG, QOW
     Route: 058
     Dates: start: 20200219

REACTIONS (4)
  - Erythema [Unknown]
  - Skin irritation [Not Recovered/Not Resolved]
  - Rash [Unknown]
  - Eye pruritus [Not Recovered/Not Resolved]
